FAERS Safety Report 19401321 (Version 1)
Quarter: 2021Q2

REPORT INFORMATION
  Report Type: Spontaneous
  Country: DE (occurrence: DE)
  Receive Date: 20210611
  Receipt Date: 20210611
  Transmission Date: 20210717
  Serious: Yes (Hospitalization)
  Sender: FDA-Public Use
  Company Number: DE-SUN PHARMACEUTICAL INDUSTRIES LTD-2021RR-299973

PATIENT
  Age: 16 Year
  Sex: Female
  Weight: 78 kg

DRUGS (3)
  1. PIPAMPERONE [Suspect]
     Active Substance: PIPAMPERONE
     Indication: POISONING
     Dosage: 360 MILLIGRAM, UNK
     Route: 048
     Dates: start: 20201217, end: 20201217
  2. L?THYROXIN [Concomitant]
     Active Substance: LEVOTHYROXINE SODIUM
     Indication: HYPOTHYROIDISM
     Dosage: UNK
     Route: 065
  3. CITALOPRAM [Suspect]
     Active Substance: CITALOPRAM HYDROBROMIDE
     Indication: POISONING
     Dosage: 90 MILLIGRAM, UNK
     Route: 048
     Dates: start: 20201217, end: 20201217

REACTIONS (4)
  - Rhonchi [Recovered/Resolved]
  - Fatigue [Recovered/Resolved]
  - Electrocardiogram QT prolonged [Recovered/Resolved]
  - Toxicity to various agents [Recovered/Resolved]

NARRATIVE: CASE EVENT DATE: 20201217
